FAERS Safety Report 5619126-X (Version None)
Quarter: 2008Q1

REPORT INFORMATION
  Report Type: 
  Country: None (occurrence: None)
  Receive Date: 20080205
  Receipt Date: 20080122
  Transmission Date: 20080703
  Serious: Yes (Hospitalization, Other)
  Sender: FDA-Public Use
  Company Number: 2007MP000674

PATIENT
  Age: 39 Year
  Sex: Male

DRUGS (3)
  1. GLIADEL [Suspect]
     Indication: GLIOBLASTOMA MULTIFORME
     Dosage: 1X; ICER
     Dates: start: 20071210, end: 20071219
  2. DILANTIN [Concomitant]
  3. KEPPRA [Concomitant]

REACTIONS (10)
  - APPLICATION SITE DISCHARGE [None]
  - APPLICATION SITE INFLAMMATION [None]
  - BRAIN MASS [None]
  - INTRACRANIAL HYPOTENSION [None]
  - LEUKOCYTOSIS [None]
  - POST PROCEDURAL COMPLICATION [None]
  - PURULENCE [None]
  - PYREXIA [None]
  - SURGICAL PROCEDURE REPEATED [None]
  - WOUND SECRETION [None]
